FAERS Safety Report 4737980-0 (Version None)
Quarter: 2005Q3

REPORT INFORMATION
  Report Type: 
  Country: None (occurrence: None)
  Receive Date: 20050809
  Receipt Date: 20050521
  Transmission Date: 20060218
  Serious: Yes (Hospitalization, Other)
  Sender: FDA-Public Use
  Company Number: PHEH2005US05840

PATIENT
  Age: 65 Year
  Sex: Male

DRUGS (4)
  1. ZOMETA [Suspect]
     Indication: RENAL CELL CARCINOMA STAGE UNSPECIFIED
  2. INTERLEUKINS [Concomitant]
  3. THALIDOMIDE [Concomitant]
  4. ANAESTHETICS [Concomitant]
     Indication: TOOTH DISORDER

REACTIONS (15)
  - ARTHRALGIA [None]
  - ASEPTIC NECROSIS BONE [None]
  - BONE DISORDER [None]
  - BONE INFECTION [None]
  - CONDITION AGGRAVATED [None]
  - EXCESSIVE GRANULATION TISSUE [None]
  - FATIGUE [None]
  - GINGIVAL BLEEDING [None]
  - INFECTION [None]
  - ORAL SURGERY [None]
  - OSTEOMYELITIS [None]
  - PAIN [None]
  - POLLAKIURIA [None]
  - SWELLING [None]
  - TOOTH DISORDER [None]
